FAERS Safety Report 9151099 (Version 1)
Quarter: 2013Q1

REPORT INFORMATION
  Report Type: Spontaneous
  Country: GB (occurrence: None)
  Receive Date: 20130204
  Receipt Date: 20130204
  Transmission Date: 20140127
  Serious: Yes (Hospitalization)
  Sender: FDA-Public Use
  Company Number: GER/UKI/13/0027678

PATIENT
  Age: 75 Year
  Sex: Female

DRUGS (6)
  1. CIPROFLOXACIN (CIPROFLOXACIN) [Suspect]
     Indication: CELLULITIS
     Route: 048
     Dates: start: 20121227, end: 20121231
  2. CITALOPRAM (CITAOLPRAM) [Concomitant]
  3. FUROSEMIDE (FUROSEMIDE) [Concomitant]
  4. LEVOTHYROXINE SODIUM (LEVOTHYROXINE SODIUM) [Concomitant]
  5. MORPHINE SULFATE (MORPHONE SULFATE) [Concomitant]
  6. SPIRONOLACTONE (SPIRONOLACTONE) [Concomitant]

REACTIONS (5)
  - Renal failure acute [None]
  - Glomerular filtration rate increased [None]
  - Rash pruritic [None]
  - Pain of skin [None]
  - Urticaria [None]
